FAERS Safety Report 4335809-6 (Version None)
Quarter: 2004Q2

REPORT INFORMATION
  Report Type: 
  Country: None (occurrence: None)
  Receive Date: 20040405
  Receipt Date: 20021023
  Transmission Date: 20050107
  Serious: Yes (Hospitalization)
  Sender: FDA-Public Use
  Company Number: 2002IC000305

PATIENT
  Age: 67 Year
  Sex: Male

DRUGS (2)
  1. FLUOROURACIL [Suspect]
     Indication: METASTASES TO LIVER
     Dosage: 1500 MG; WEEKLY; INTRA-ARTERIAL
     Route: 013
     Dates: start: 20010530, end: 20011009
  2. FLUOROURACIL [Suspect]
     Indication: RECTAL CANCER
     Dosage: 1500 MG; WEEKLY; INTRA-ARTERIAL
     Route: 013
     Dates: start: 20010530, end: 20011009

REACTIONS (4)
  - ABDOMINAL PAIN [None]
  - HEPATIC ARTERY OCCLUSION [None]
  - HEPATIC INFARCTION [None]
  - PYREXIA [None]
